FAERS Safety Report 5702391-8 (Version None)
Quarter: 2008Q2

REPORT INFORMATION
  Report Type: 
  Country: None (occurrence: None)
  Receive Date: 20080411
  Receipt Date: 20080407
  Transmission Date: 20081010
  Serious: Yes (Other)
  Sender: FDA-Public Use
  Company Number: DE-BRISTOL-MYERS SQUIBB COMPANY-14143861

PATIENT
  Age: 5 Year
  Sex: Male

DRUGS (4)
  1. ETOPOSIDE [Suspect]
  2. RADIOTHERAPY [Suspect]
  3. THYMOGLOBULIN [Suspect]
  4. TACROLIMUS [Suspect]

REACTIONS (4)
  - CONVULSION [None]
  - DRUG TOXICITY [None]
  - GRAFT VERSUS HOST DISEASE [None]
  - REVERSIBLE POSTERIOR LEUKOENCEPHALOPATHY SYNDROME [None]
